FAERS Safety Report 14151963 (Version 1)
Quarter: 2017Q4

REPORT INFORMATION
  Report Type: Spontaneous
  Country: US (occurrence: US)
  Receive Date: 20171102
  Receipt Date: 20171102
  Transmission Date: 20180321
  Serious: Yes (Death, Life-Threatening, Hospitalization, Other)
  Sender: FDA-Public Use
  Company Number: US-ACCORD-059751

PATIENT
  Age: 78 Year
  Sex: Male
  Weight: 68 kg

DRUGS (5)
  1. CAPECITABINE. [Suspect]
     Active Substance: CAPECITABINE
     Indication: METASTASES TO LIVER
     Dosage: 2000 MG IN THE MORNING AND 1500 MG IN THE EVENING
     Route: 048
  2. MEMANTINE/MEMANTINE HYDROCHLORIDE [Concomitant]
  3. CLOTRIMAZOLE. [Concomitant]
     Active Substance: CLOTRIMAZOLE
  4. CLOPIDOGREL [Concomitant]
     Active Substance: CLOPIDOGREL BISULFATE
  5. TIMOLOL. [Concomitant]
     Active Substance: TIMOLOL

REACTIONS (12)
  - Dementia [Not Recovered/Not Resolved]
  - Bacteraemia [Fatal]
  - Thrombocytopenia [Not Recovered/Not Resolved]
  - Skin ulcer [Not Recovered/Not Resolved]
  - Sepsis [Fatal]
  - Bone marrow failure [Not Recovered/Not Resolved]
  - Delirium [Not Recovered/Not Resolved]
  - Dysphagia [Not Recovered/Not Resolved]
  - Dermatitis [Not Recovered/Not Resolved]
  - Neutropenia [Not Recovered/Not Resolved]
  - Mucosal inflammation [Not Recovered/Not Resolved]
  - Diarrhoea [Not Recovered/Not Resolved]
